FAERS Safety Report 8725796 (Version 2)
Quarter: 2012Q4

REPORT INFORMATION
  Report Type: 
  Country: US (occurrence: US)
  Receive Date: 20120816
  Receipt Date: 20121011
  Transmission Date: 20130627
  Serious: No
  Sender: FDA-Public Use
  Company Number: US-BIOGENIDEC-2012BI030090

PATIENT
  Age: 42 Year
  Sex: Female

DRUGS (2)
  1. TYSABRI [Suspect]
     Indication: MULTIPLE SCLEROSIS
     Route: 042
     Dates: start: 20080229, end: 20100326
  2. TYSABRI [Suspect]
     Indication: MULTIPLE SCLEROSIS
     Route: 042
     Dates: start: 20101018

REACTIONS (7)
  - Oedema peripheral [Recovered/Resolved]
  - Weight increased [Unknown]
  - Body mass index increased [Unknown]
  - Micturition urgency [Unknown]
  - Pollakiuria [Unknown]
  - Asthma [Unknown]
  - Arthralgia [Recovered/Resolved]
